FAERS Safety Report 9249436 (Version 2)
Quarter: 2013Q2

REPORT INFORMATION
  Report Type: Spontaneous
  Country: US (occurrence: US)
  Receive Date: 20130423
  Receipt Date: 20130503
  Transmission Date: 20140414
  Serious: Yes (Congenital Anomaly)
  Sender: FDA-Public Use
  Company Number: US-GLAXOSMITHKLINE-A1020786A

PATIENT
  Age: 0 Year
  Sex: Female
  Weight: 2.7 kg

DRUGS (1)
  1. PAXIL [Suspect]
     Indication: PRODUCT USED FOR UNKNOWN INDICATION
     Dosage: 30MG TWICE PER DAY
     Route: 064
     Dates: start: 200509

REACTIONS (7)
  - Synostosis [Unknown]
  - Head deformity [Unknown]
  - Plagiocephaly [Unknown]
  - Coeliac disease [Unknown]
  - Cardiac murmur [Unknown]
  - Foot deformity [Unknown]
  - Foetal exposure during pregnancy [Unknown]
